FAERS Safety Report 11268180 (Version 1)
Quarter: 2015Q3

REPORT INFORMATION
  Report Type: Spontaneous
  Country: US (occurrence: US)
  Receive Date: 20150714
  Receipt Date: 20150714
  Transmission Date: 20151125
  Serious: Yes (Hospitalization, Other)
  Sender: FDA-Public Use
  Company Number: US-PAR PHARMACEUTICAL, INC-2015SCPR014126

PATIENT

DRUGS (8)
  1. IBUPROFEN. [Suspect]
     Active Substance: IBUPROFEN
     Indication: HEADACHE
     Dosage: UNK UNK, UNKNOWN
     Route: 065
  2. REGN668 VS PLACEBO (CODE NOT BROKEN) INJECTION [Suspect]
     Active Substance: DUPILUMAB
     Indication: DERMATITIS ATOPIC
     Dosage: BLINDED THERAPY, WEEKLY
     Route: 058
     Dates: start: 20150109, end: 20150331
  3. ASPIRIN                            /00002701/ [Suspect]
     Active Substance: ASPIRIN
     Indication: HEADACHE
     Dosage: UNK, UNKNOWN
     Route: 065
  4. ZYRTEC [Concomitant]
     Active Substance: CETIRIZINE HYDROCHLORIDE
     Indication: PRODUCT USED FOR UNKNOWN INDICATION
     Dosage: UNK, UNKNOWN
     Route: 065
     Dates: start: 2005
  5. TAMIFLU [Concomitant]
     Active Substance: OSELTAMIVIR PHOSPHATE
     Indication: PRODUCT USED FOR UNKNOWN INDICATION
     Dosage: UNK, UNKNOWN
     Route: 065
     Dates: start: 20150219, end: 20150224
  6. REGN668 VS PLACEBO (CODE NOT BROKEN) INJECTION [Suspect]
     Active Substance: DUPILUMAB
     Dosage: BLINDED THERAPY, WEEKLY
     Route: 058
     Dates: start: 20150422
  7. VENTOLIN [Concomitant]
     Active Substance: ALBUTEROL SULFATE
     Indication: PRODUCT USED FOR UNKNOWN INDICATION
     Dosage: UNK, UNKNOWN
     Route: 065
     Dates: start: 2011
  8. SINGULAIR [Concomitant]
     Active Substance: MONTELUKAST SODIUM
     Indication: PRODUCT USED FOR UNKNOWN INDICATION
     Dosage: UNK, UNKNOWN
     Route: 065
     Dates: start: 2007

REACTIONS (11)
  - Headache [None]
  - Occupational exposure to air contaminants [None]
  - Loss of consciousness [None]
  - Stress at work [None]
  - Gastric ulcer haemorrhage [None]
  - Condition aggravated [Unknown]
  - Serum ferritin decreased [Unknown]
  - Dehydration [None]
  - Occult blood positive [None]
  - Gastric ulcer [Recovered/Resolved]
  - Haemoglobin decreased [Recovering/Resolving]

NARRATIVE: CASE EVENT DATE: 20150331
